FAERS Safety Report 13547950 (Version 1)
Quarter: 2017Q2

REPORT INFORMATION
  Report Type: Spontaneous
  Country: IT (occurrence: IT)
  Receive Date: 20170516
  Receipt Date: 20170516
  Transmission Date: 20170830
  Serious: Yes (Other)
  Sender: FDA-Public Use
  Company Number: IT-MERCK KGAA-2020779

PATIENT
  Age: 38 Year
  Sex: Female

DRUGS (4)
  1. SYNEPHRINE [Suspect]
     Active Substance: OXEDRINE
  2. NOVOTHYROX [Suspect]
     Active Substance: LEVOTHYROXINE SODIUM
     Indication: DECREASED APPETITE
  3. CAFFEINE. [Suspect]
     Active Substance: CAFFEINE
  4. SPIRONOLACTONE. [Suspect]
     Active Substance: SPIRONOLACTONE

REACTIONS (2)
  - Off label use [None]
  - Hyperthyroidism [Recovered/Resolved]
